FAERS Safety Report 9817175 (Version 1)
Quarter: 2014Q1

REPORT INFORMATION
  Report Type: Report from Study
  Country: US (occurrence: US)
  Receive Date: 20140114
  Receipt Date: 20140114
  Transmission Date: 20141002
  Serious: Yes (Other)
  Sender: FDA-Public Use
  Company Number: US-ABBVIE-14P-163-1187485-00

PATIENT
  Age: 34 Year
  Sex: Male

DRUGS (1)
  1. CREON [Suspect]
     Indication: CYSTIC FIBROSIS
     Dosage: 6 CAPSULES PER MEAL
     Dates: start: 200501

REACTIONS (1)
  - Lung transplant [Recovered/Resolved]
